FAERS Safety Report 17485263 (Version 2)
Quarter: 2020Q1

REPORT INFORMATION
  Report Type: Spontaneous
  Country: US (occurrence: US)
  Receive Date: 20200302
  Receipt Date: 20200303
  Transmission Date: 20200409
  Serious: No
  Sender: FDA-Public Use
  Company Number: US-009507513-2002USA007683

PATIENT
  Age: 30 Year
  Sex: Female

DRUGS (4)
  1. NUVARING [Suspect]
     Active Substance: ETHINYL ESTRADIOL\ETONOGESTREL
     Dosage: ONE RING FOR 3 WEEKS, TAKE IT OUT FOR ONE WEEK AND THEN FOR THE NEXT TWO RINGS SHE DID NOT HAVE A RI
  2. ZOLOFT [Concomitant]
     Active Substance: SERTRALINE HYDROCHLORIDE
  3. ETONOGESTREL (+) ETHINYL ESTRADIOL [Suspect]
     Active Substance: ETHINYL ESTRADIOL\ETONOGESTREL
     Dosage: UNK
  4. NUVARING [Suspect]
     Active Substance: ETHINYL ESTRADIOL\ETONOGESTREL
     Indication: PRODUCT USED FOR UNKNOWN INDICATION
     Dosage: STRENGTH: .015/.12 (NO UNITS REPORTED)/ ^1 RING IN FOR 3 WEEKS, OUT FOR A WEEK^; ROUTE OF ADMINISTRA

REACTIONS (6)
  - Drug ineffective [Unknown]
  - Incorrect product administration duration [Unknown]
  - Abnormal withdrawal bleeding [Recovered/Resolved]
  - Anxiety [Recovered/Resolved]
  - Depression [Recovered/Resolved]
  - Mood swings [Recovered/Resolved]

NARRATIVE: CASE EVENT DATE: 201912
